FAERS Safety Report 9344403 (Version 1)
Quarter: 2013Q2

REPORT INFORMATION
  Report Type: Spontaneous
  Country: US (occurrence: US)
  Receive Date: 20130612
  Receipt Date: 20130612
  Transmission Date: 20140414
  Serious: No
  Sender: FDA-Public Use
  Company Number: US-US-EMD SERONO, INC.-7098784

PATIENT
  Age: 59 Year
  Sex: Female

DRUGS (1)
  1. REBIF [Suspect]
     Indication: MULTIPLE SCLEROSIS
     Route: 058
     Dates: start: 20110923, end: 201206

REACTIONS (9)
  - Confusional state [Not Recovered/Not Resolved]
  - Dizziness [Unknown]
  - Dizziness [Unknown]
  - Arthralgia [Unknown]
  - Fatigue [Unknown]
  - Injection site haemorrhage [Unknown]
  - Injection site erythema [Unknown]
  - Injection site pain [Unknown]
  - Depression [Unknown]
